FAERS Safety Report 8724128 (Version 2)
Quarter: 2013Q1

REPORT INFORMATION
  Report Type: Spontaneous
  Country: BR (occurrence: BR)
  Receive Date: 20120815
  Receipt Date: 20130129
  Transmission Date: 20140127
  Serious: Yes (Hospitalization, Disabling, Other)
  Sender: FDA-Public Use
  Company Number: PHHY2012BR069717

PATIENT
  Age: 86 Year
  Sex: Female

DRUGS (2)
  1. DIOVAN [Suspect]
     Indication: HYPERTENSION
     Dosage: 2 DF (160 MG), DAILY
     Route: 048
     Dates: start: 201110
  2. INSULIN [Concomitant]
     Indication: DIABETES MELLITUS
     Dosage: UNK UKN, UNK
     Route: 058

REACTIONS (2)
  - Cerebrovascular accident [Recovering/Resolving]
  - Hemiplegia [Unknown]
